FAERS Safety Report 7005214-2 (Version None)
Quarter: 2010Q3

REPORT INFORMATION
  Report Type: 
  Country: None (occurrence: None)
  Receive Date: 20100920
  Receipt Date: 20100920
  Transmission Date: 20110219
  Serious: Yes (Hospitalization)
  Sender: FDA-Public Use
  Company Number: None

PATIENT
  Age: 42 Year
  Sex: Male
  Weight: 195 kg

DRUGS (1)
  1. RIFAMPIN [Suspect]
     Indication: TUBERCULOSIS
     Dosage: 600 MG EVERY DAY PO
     Route: 048
     Dates: start: 20100426, end: 20100430

REACTIONS (2)
  - NEPHROPATHY TOXIC [None]
  - TUBULOINTERSTITIAL NEPHRITIS [None]
